FAERS Safety Report 20967495 (Version 12)
Quarter: 2025Q1

REPORT INFORMATION
  Report Type: Report from Study
  Country: CA (occurrence: CA)
  Receive Date: 20220616
  Receipt Date: 20250307
  Transmission Date: 20250409
  Serious: Yes (Other)
  Sender: TAKEDA
  Company Number: CA-TAKEDA-2022TUS010522

PATIENT
  Age: 52 Year
  Sex: Male
  Weight: 90 kg

DRUGS (6)
  1. VEDOLIZUMAB [Suspect]
     Active Substance: VEDOLIZUMAB
     Indication: Crohn^s disease
  2. VEDOLIZUMAB [Suspect]
     Active Substance: VEDOLIZUMAB
     Indication: Colitis ulcerative
     Dosage: 300 MILLIGRAM, Q4WEEKS
     Dates: start: 20220114
  3. VEDOLIZUMAB [Suspect]
     Active Substance: VEDOLIZUMAB
     Dosage: 300 MILLIGRAM, Q4WEEKS
     Dates: end: 20240929
  4. VEDOLIZUMAB [Suspect]
     Active Substance: VEDOLIZUMAB
     Indication: Crohn^s disease
     Dosage: 108 MILLIGRAM, Q2WEEKS
     Dates: start: 20250224
  5. CIPROFLOXACIN [Concomitant]
     Active Substance: CIPROFLOXACIN
  6. FLAGYL [Concomitant]
     Active Substance: METRONIDAZOLE\METRONIDAZOLE HYDROCHLORIDE
     Dosage: 500 MILLIGRAM, BID
     Dates: start: 20240605

REACTIONS (17)
  - Rectal haemorrhage [Unknown]
  - Intestinal stenosis [Unknown]
  - Haematochezia [Unknown]
  - Crohn^s disease [Unknown]
  - Gastrointestinal anastomotic stenosis [Unknown]
  - Pouchitis [Recovered/Resolved]
  - Diarrhoea [Unknown]
  - Frequent bowel movements [Unknown]
  - Faeces soft [Unknown]
  - Abdominal discomfort [Unknown]
  - Off label use [Unknown]
  - Aphthous ulcer [Unknown]
  - Malaise [Unknown]
  - Abdominal pain [Unknown]
  - Anal fissure [Unknown]
  - Abdominal distension [Unknown]
  - Arthralgia [Unknown]

NARRATIVE: CASE EVENT DATE: 20220114
